FAERS Safety Report 15122873 (Version 1)
Quarter: 2018Q3

REPORT INFORMATION
  Report Type: Spontaneous
  Country: US (occurrence: US)
  Receive Date: 20180613
  Receipt Date: 20180613
  Transmission Date: 20181010
  Serious: Yes (Other)
  Sender: FDA-Public Use
  Company Number: None

PATIENT
  Age: 65 Year
  Sex: Female
  Weight: 59.4 kg

DRUGS (9)
  1. FISH OIL [Concomitant]
     Active Substance: FISH OIL
  2. PIOGLITAZONE. [Concomitant]
     Active Substance: PIOGLITAZONE
  3. MYLERAN [Suspect]
     Active Substance: BUSULFAN
     Indication: LYMPHOMA
     Route: 048
     Dates: start: 20180116, end: 20180613
  4. SIMVASTATIN. [Concomitant]
     Active Substance: SIMVASTATIN
  5. PROCHLORPERAZINE. [Concomitant]
     Active Substance: PROCHLORPERAZINE
  6. CLOPIDOGREL [Concomitant]
     Active Substance: CLOPIDOGREL BISULFATE
  7. REFRESH OPTIVE [Concomitant]
     Active Substance: CARBOXYMETHYLCELLULOSE SODIUM\GLYCERIN
  8. VITAMIN D [Concomitant]
     Active Substance: CHOLECALCIFEROL
  9. PROTONIX [Concomitant]
     Active Substance: PANTOPRAZOLE SODIUM

REACTIONS (1)
  - Disease progression [None]
